FAERS Safety Report 7006664-0 (Version None)
Quarter: 2010Q3

REPORT INFORMATION
  Report Type: 
  Country: None (occurrence: None)
  Receive Date: 20100910
  Receipt Date: 20100907
  Transmission Date: 20110219
  Serious: Yes (Death, Hospitalization, Other)
  Sender: FDA-Public Use
  Company Number: WAES 1008USA00550

PATIENT
  Age: 71 Year
  Sex: Male
  Weight: 91.6266 kg

DRUGS (2)
  1. CAP VORINOSTAT UNK [Suspect]
     Indication: ACUTE MYELOID LEUKAEMIA
     Dosage: 300 MG DAILY PO
     Route: 048
     Dates: start: 20100720, end: 20100726
  2. VELCADE [Suspect]
     Indication: ACUTE MYELOID LEUKAEMIA
     Dosage: 1.0 MG/M2 UNK IV
     Route: 042
     Dates: start: 20100720, end: 20100723

REACTIONS (15)
  - BACTERIAL INFECTION [None]
  - COMPUTERISED TOMOGRAM ABNORMAL [None]
  - DYSPNOEA [None]
  - FLUID OVERLOAD [None]
  - FUNGAL INFECTION [None]
  - HYPOPHAGIA [None]
  - HYPOTENSION [None]
  - HYPOXIA [None]
  - NEUTROPHIL COUNT DECREASED [None]
  - PLEURAL EFFUSION [None]
  - PNEUMONIA [None]
  - PNEUMONITIS [None]
  - PULMONARY OEDEMA [None]
  - RENAL FAILURE [None]
  - VIRAL INFECTION [None]
